FAERS Safety Report 6626099-X (Version None)
Quarter: 2010Q1

REPORT INFORMATION
  Report Type: 
  Country: None (occurrence: None)
  Receive Date: 20100310
  Receipt Date: 20100303
  Transmission Date: 20100710
  Serious: Yes (Hospitalization)
  Sender: FDA-Public Use
  Company Number: B0562447B

PATIENT
  Sex: Female
  Weight: 46 kg

DRUGS (10)
  1. LAPATINIB [Suspect]
     Indication: BREAST CANCER
     Dosage: 1000MG PER DAY
     Route: 048
     Dates: start: 20081014
  2. TRASTUZUMAB [Suspect]
     Indication: BREAST CANCER
     Dosage: 2MGK WEEKLY
     Route: 042
     Dates: start: 20081014
  3. PACLITAXEL [Suspect]
     Indication: BREAST CANCER
     Dosage: 80MGM2 WEEKLY
     Route: 042
     Dates: start: 20081125
  4. FLUOROURACIL [Concomitant]
     Route: 042
     Dates: start: 20090318
  5. EPIRUBICIN [Concomitant]
     Route: 042
     Dates: start: 20090318
  6. CYCLOPHOSPHAMIDE [Concomitant]
     Route: 042
     Dates: start: 20090318
  7. SYMBICORT [Concomitant]
     Indication: ASTHMA
     Dosage: 4.5UG PER DAY
     Route: 048
  8. MOTILIUM [Concomitant]
     Indication: NAUSEA
     Dosage: 10MG AS REQUIRED
     Route: 048
     Dates: start: 20081101
  9. IMODIUM [Concomitant]
     Dosage: 2MG AS REQUIRED
     Route: 048
     Dates: start: 20081101
  10. DERMOVAT [Concomitant]
     Indication: DRY SKIN
     Dates: start: 20081101

REACTIONS (2)
  - COUGH [None]
  - ORGANISING PNEUMONIA [None]
